FAERS Safety Report 8557919-X (Version None)
Quarter: 2012Q3

REPORT INFORMATION
  Report Type: 
  Country: None (occurrence: None)
  Receive Date: 20120801
  Receipt Date: 20120720
  Transmission Date: 20120928
  Serious: Yes (Other)
  Sender: FDA-Public Use
  Company Number: FR-BRISTOL-MYERS SQUIBB COMPANY-16796146

PATIENT
  Age: 45 Year
  Sex: Male

DRUGS (4)
  1. NORVIR [Suspect]
     Indication: HIV INFECTION
     Dosage: 15APR2001-10MAY2005 10MAY2005-24MAR2008 04MAR2008-27FEB2012
     Dates: start: 20000101, end: 20120227
  2. REYATAZ [Suspect]
     Indication: HIV INFECTION
     Dosage: 10MAY2005-24MAR2008 04MAR2008-27FEB2012
     Route: 048
     Dates: start: 20050101, end: 20120227
  3. ISENTRESS [Concomitant]
     Dates: start: 20120227
  4. TRUVADA [Concomitant]
     Dosage: 04MAR2008-27FEB2012
     Route: 048
     Dates: start: 20080101

REACTIONS (1)
  - PERIPHERAL SENSORY NEUROPATHY [None]
